FAERS Safety Report 8927436 (Version 3)
Quarter: 2013Q4

REPORT INFORMATION
  Report Type: Spontaneous
  Country: US (occurrence: US)
  Receive Date: 20121127
  Receipt Date: 20131216
  Transmission Date: 20140711
  Serious: Yes (Hospitalization, Other)
  Sender: FDA-Public Use
  Company Number: US-BAYER-2012-124084

PATIENT
  Age: 31 Year
  Sex: Female
  Weight: 72.56 kg

DRUGS (6)
  1. YASMIN [Suspect]
     Indication: CONTRACEPTION
     Dosage: UNK
     Dates: start: 200307, end: 200310
  2. YASMIN [Suspect]
     Indication: PREMENSTRUAL SYNDROME
  3. YAZ [Suspect]
     Indication: CONTRACEPTION
     Dosage: UNK
     Dates: start: 200905, end: 200911
  4. YAZ [Suspect]
     Indication: PREMENSTRUAL SYNDROME
     Dosage: UNK
     Dates: start: 201003, end: 201003
  5. NEURONTIN [Concomitant]
     Indication: MIGRAINE
  6. FIORICET [Concomitant]

REACTIONS (3)
  - Cholecystectomy [None]
  - Injury [None]
  - Cholecystitis chronic [None]
